FAERS Safety Report 4510215-X (Version None)
Quarter: 2004Q4

REPORT INFORMATION
  Report Type: 
  Country: None (occurrence: None)
  Receive Date: 20041119
  Receipt Date: 20041104
  Transmission Date: 20050328
  Serious: Yes (Congenital Anomaly)
  Sender: FDA-Public Use
  Company Number: 2004S1000248

PATIENT

DRUGS (1)
  1. ACITRETIN            (ACITRETIN) [Suspect]
     Dosage: 10 MG; QD; TRPL
     Route: 064

REACTIONS (12)
  - ANOMALY OF EXTERNAL EAR CONGENITAL [None]
  - CONGENITAL ANOMALY [None]
  - CONGENITAL ATRIAL SEPTAL DEFECT [None]
  - CONGENITAL EYE DISORDER [None]
  - CONGENITAL NOSE MALFORMATION [None]
  - DEAFNESS BILATERAL [None]
  - DEAFNESS CONGENITAL [None]
  - DEAFNESS NEUROSENSORY [None]
  - DEVELOPMENTAL DELAY [None]
  - DRUG EXPOSURE DURING PREGNANCY [None]
  - HIGH ARCHED PALATE [None]
  - MICROCEPHALY [None]
